FAERS Safety Report 4965054-2 (Version None)
Quarter: 2006Q1

REPORT INFORMATION
  Report Type: 
  Country: None (occurrence: None)
  Receive Date: 20060207
  Receipt Date: 20050503
  Transmission Date: 20060701
  Serious: Yes (Life-Threatening)
  Sender: FDA-Public Use
  Company Number: 236600

PATIENT
  Age: 76 Year
  Sex: Female
  Weight: 76.2 kg

DRUGS (10)
  1. NOVOLOG [Suspect]
     Indication: DIABETES MELLITUS INSULIN-DEPENDENT
     Dosage: 6 - 10 UNITS, TID, SUBCUTANEOUS
     Route: 058
     Dates: start: 20031101
  2. LANTUS [Concomitant]
  3. NOVOPEN JUNIOR (INSULIN DELIVERY DEVICE) [Concomitant]
  4. NORVASC [Concomitant]
  5. TOPROL-XL [Concomitant]
  6. DIOVAN HCT [Concomitant]
  7. ZOCOR [Concomitant]
  8. ACTONEL [Concomitant]
  9. ADVAIR DISKUS 100/50 [Concomitant]
  10. NITROFURANTOIN [Concomitant]

REACTIONS (2)
  - HYPOGLYCAEMIC COMA [None]
  - HYPOKALAEMIA [None]
